FAERS Safety Report 17236970 (Version 2)
Quarter: 2020Q1

REPORT INFORMATION
  Report Type: Spontaneous
  Country: GR (occurrence: GR)
  Receive Date: 20200106
  Receipt Date: 20200108
  Transmission Date: 20200409
  Serious: Yes (Death)
  Sender: FDA-Public Use
  Company Number: GR-PFIZER INC-2019562172

PATIENT
  Age: 33 Year
  Sex: Male

DRUGS (5)
  1. MIDAZOLAM HYDROCHLORIDE. [Concomitant]
     Active Substance: MIDAZOLAM HYDROCHLORIDE
     Indication: SEDATION
     Dosage: UNK
  2. REMIFENTANIL [Concomitant]
     Active Substance: REMIFENTANIL
     Indication: SEDATION
     Dosage: UNK
  3. PROPOFOL. [Suspect]
     Active Substance: PROPOFOL
     Indication: SEDATION
     Dosage: UNK, UNK (LOW (2.5 MG/KG/ H))
  4. NORADRENALINE [NOREPINEPHRINE] [Concomitant]
     Active Substance: NOREPINEPHRINE
     Indication: CEREBRAL HYPOPERFUSION
     Dosage: UNK
  5. THIOPENTAL [Concomitant]
     Active Substance: THIOPENTAL
     Indication: BRAIN OEDEMA
     Dosage: UNK

REACTIONS (2)
  - Electrocardiogram abnormal [Fatal]
  - Propofol infusion syndrome [Unknown]
